FAERS Safety Report 12295835 (Version 2)
Quarter: 2016Q2

REPORT INFORMATION
  Report Type: Spontaneous
  Country: CA (occurrence: CA)
  Receive Date: 20160422
  Receipt Date: 20160510
  Transmission Date: 20160815
  Serious: Yes (Life-Threatening, Hospitalization, Other)
  Sender: FDA-Public Use
  Company Number: CA-SUNOVION-2016SUN000992

PATIENT
  Sex: Female

DRUGS (5)
  1. CLONAZEPAM. [Concomitant]
     Active Substance: CLONAZEPAM
     Dosage: 1.5 MG, UNK
  2. EPIVAL [Concomitant]
     Active Substance: DIVALPROEX SODIUM
     Dosage: 150 MG, UNK
  3. MORPHINE [Concomitant]
     Active Substance: MORPHINE
     Dosage: 15 MG, UNK
  4. GABAPENTIN. [Concomitant]
     Active Substance: GABAPENTIN
     Dosage: 270 MG, UNK
  5. LATUDA [Suspect]
     Active Substance: LURASIDONE HYDROCHLORIDE
     Indication: BIPOLAR DISORDER
     Dosage: 80 MG, UNK
     Route: 048

REACTIONS (4)
  - Intentional overdose [Recovered/Resolved]
  - Mood swings [Unknown]
  - Suicide attempt [Recovered/Resolved]
  - Coma [Recovered/Resolved]
